FAERS Safety Report 10855045 (Version 2)
Quarter: 2015Q2

REPORT INFORMATION
  Report Type: Not Available
  Country: AU (occurrence: AU)
  Receive Date: 20150223
  Receipt Date: 20150615
  Transmission Date: 20150821
  Serious: Yes (Death, Other)
  Sender: FDA-Public Use
  Company Number: AU-CELGENE-008-21880-13042396

PATIENT

DRUGS (3)
  1. REVLIMID [Suspect]
     Active Substance: LENALIDOMIDE
     Indication: PLASMA CELL MYELOMA
     Route: 048
  2. PREDNISOLONE. [Concomitant]
     Active Substance: PREDNISOLONE
     Indication: PLASMA CELL MYELOMA
     Route: 065
  3. REVLIMID [Suspect]
     Active Substance: LENALIDOMIDE
     Route: 048

REACTIONS (27)
  - Plasma cell myeloma [Fatal]
  - Embolism venous [Unknown]
  - Deep vein thrombosis [Unknown]
  - Hyperglycaemia [Unknown]
  - Neuropathy peripheral [Unknown]
  - Intestinal adenocarcinoma [Unknown]
  - Thrombocytopenia [Unknown]
  - Anaemia [Unknown]
  - Diarrhoea [Unknown]
  - Fatigue [Unknown]
  - Acute myeloid leukaemia [Fatal]
  - Plasma cell myeloma [Unknown]
  - Plasma cell myeloma recurrent [Fatal]
  - Neutropenia [Unknown]
  - Urinary tract infection [Unknown]
  - Muscle spasms [Unknown]
  - Oedema peripheral [Unknown]
  - Pulmonary embolism [Unknown]
  - Bone marrow failure [Unknown]
  - Herpes zoster [Unknown]
  - Mouth ulceration [Unknown]
  - Upper respiratory tract infection [Unknown]
  - Lower respiratory tract infection [Unknown]
  - Death [Fatal]
  - Squamous cell carcinoma of skin [Unknown]
  - Retinal vein thrombosis [Unknown]
  - Insomnia [Unknown]
